FAERS Safety Report 8059319-8 (Version None)
Quarter: 2012Q1

REPORT INFORMATION
  Report Type: 
  Country: None (occurrence: None)
  Receive Date: 20120113
  Receipt Date: 20111230
  Transmission Date: 20120608
  Serious: Yes (Other)
  Sender: FDA-Public Use
  Company Number: 1149852

PATIENT
  Sex: Male

DRUGS (1)
  1. CARBOPLATIN [Suspect]
     Indication: PRODUCT USED FOR UNKNOWN INDICATION
     Dates: start: 20111228

REACTIONS (2)
  - GASTROENTERITIS [None]
  - MALAISE [None]
